FAERS Safety Report 8101626-4 (Version None)
Quarter: 2012Q1

REPORT INFORMATION
  Report Type: 
  Country: None (occurrence: None)
  Receive Date: 20120129
  Receipt Date: 20111011
  Transmission Date: 20120608
  Serious: Yes (Hospitalization)
  Sender: FDA-Public Use
  Company Number: US-ABBOTT-11P-163-0863274-00

PATIENT
  Sex: Male
  Weight: 86.26 kg

DRUGS (2)
  1. HUMIRA [Suspect]
     Indication: PSORIATIC ARTHROPATHY
     Route: 058
     Dates: start: 20080101, end: 20110101
  2. HUMIRA [Suspect]
     Route: 058
     Dates: start: 20110701

REACTIONS (3)
  - PAIN IN EXTREMITY [None]
  - PERIRECTAL ABSCESS [None]
  - MUSCULOSKELETAL PAIN [None]
